FAERS Safety Report 9239512 (Version 1)
Quarter: 2013Q2

REPORT INFORMATION
  Report Type: Spontaneous
  Country: IE (occurrence: IE)
  Receive Date: 20130418
  Receipt Date: 20130418
  Transmission Date: 20140414
  Serious: Yes (Other)
  Sender: FDA-Public Use
  Company Number: IE-ABBOTT-13X-229-1077125-00

PATIENT
  Sex: 0

DRUGS (1)
  1. EPILIM LIQUID [Suspect]
     Indication: EPILEPSY
     Dosage: UNKNOWN;UNKNOWN
     Route: 048

REACTIONS (2)
  - Drug dose omission [Unknown]
  - Epilepsy [Unknown]
